FAERS Safety Report 8395183-5 (Version None)
Quarter: 2012Q2

REPORT INFORMATION
  Report Type: 
  Country: None (occurrence: None)
  Receive Date: 20120530
  Receipt Date: 20120518
  Transmission Date: 20120825
  Serious: Yes (Other)
  Sender: FDA-Public Use
  Company Number: US-BAYER-2012-050882

PATIENT
  Sex: Male

DRUGS (1)
  1. NAPROXEN (ALEVE) [Suspect]
     Route: 048

REACTIONS (3)
  - LOSS OF CONSCIOUSNESS [None]
  - HYPERSENSITIVITY [None]
  - VITAL FUNCTIONS ABNORMAL [None]
